FAERS Safety Report 4322200-1 (Version None)
Quarter: 2004Q1

REPORT INFORMATION
  Report Type: 
  Country: None (occurrence: None)
  Receive Date: 20040319
  Receipt Date: 20040308
  Transmission Date: 20041129
  Serious: No
  Sender: FDA-Public Use
  Company Number: 2003IM001221

PATIENT
  Age: 58 Year
  Sex: Male

DRUGS (6)
  1. ACTIMMUNE [Suspect]
     Indication: INTERSTITIAL LUNG DISEASE
     Dosage: SUBCUTANEOUS
     Route: 058
     Dates: end: 20020922
  2. DIGITALIS [Concomitant]
  3. AVANDIA [Concomitant]
  4. GLYBURIDE [Concomitant]
  5. LISINOPRIL [Concomitant]
  6. LASIX [Concomitant]

REACTIONS (3)
  - GLOMERULONEPHRITIS FOCAL [None]
  - RENAL FAILURE ACUTE [None]
  - RENAL TUBULAR NECROSIS [None]
